FAERS Safety Report 8337037-6 (Version None)
Quarter: 2012Q2

REPORT INFORMATION
  Report Type: 
  Country: None (occurrence: None)
  Receive Date: 20120504
  Receipt Date: 20110622
  Transmission Date: 20120825
  Serious: No
  Sender: FDA-Public Use
  Company Number: US-TEVA-2011003328

PATIENT
  Sex: Female
  Weight: 106.69 kg

DRUGS (11)
  1. ATENOLOL [Concomitant]
  2. LASIX [Concomitant]
  3. NUVIGIL [Suspect]
     Indication: SOMNOLENCE
     Route: 048
     Dates: start: 20110608, end: 20110608
  4. MOBIC [Concomitant]
  5. LISINOPRIL [Concomitant]
     Dates: start: 20010101
  6. OMEPRAZOLE [Concomitant]
     Dates: start: 20090101
  7. REQUIP [Concomitant]
     Dates: start: 20090101
  8. CYMBALTA [Concomitant]
     Dates: start: 20050101
  9. NORVASC [Concomitant]
  10. SINGULAIR [Concomitant]
     Dates: start: 20110401
  11. OXYBUTYNIN [Concomitant]
     Dates: start: 20100101

REACTIONS (1)
  - INSOMNIA [None]
